FAERS Safety Report 7313987-4 (Version None)
Quarter: 2011Q1

REPORT INFORMATION
  Report Type: 
  Country: None (occurrence: None)
  Receive Date: 20110225
  Receipt Date: 20110215
  Transmission Date: 20110831
  Serious: No
  Sender: FDA-Public Use
  Company Number: PHHY2010CA28504

PATIENT
  Sex: Female

DRUGS (1)
  1. SANDOSTATIN LAR [Suspect]
     Indication: NEUROENDOCRINE TUMOUR
     Dosage: 30 MG, QMO
     Route: 030
     Dates: start: 20100326

REACTIONS (5)
  - FATIGUE [None]
  - WEIGHT INCREASED [None]
  - ASTHENIA [None]
  - DIZZINESS [None]
  - INCREASED APPETITE [None]
